FAERS Safety Report 6283192-1 (Version None)
Quarter: 2009Q3

REPORT INFORMATION
  Report Type: 
  Country: None (occurrence: None)
  Receive Date: 20090724
  Receipt Date: 20090713
  Transmission Date: 20100115
  Serious: Yes (Hospitalization)
  Sender: FDA-Public Use
  Company Number: B0585427A

PATIENT
  Age: 11 Year
  Sex: Male

DRUGS (1)
  1. AMOXICILLIN AND CLAVULANATE POTASSIUM [Suspect]
     Route: 048

REACTIONS (10)
  - BLOOD IMMUNOGLOBULIN E INCREASED [None]
  - CARDIAC DISORDER [None]
  - CARDIAC ENZYMES INCREASED [None]
  - CHEST PAIN [None]
  - ELECTROCARDIOGRAM ST SEGMENT ELEVATION [None]
  - HYPERSENSITIVITY [None]
  - KOUNIS SYNDROME [None]
  - PALPITATIONS [None]
  - PRURITUS [None]
  - TRYPTASE INCREASED [None]
